FAERS Safety Report 10487550 (Version 2)
Quarter: 2014Q4

REPORT INFORMATION
  Report Type: Report from Study
  Country: ES (occurrence: ES)
  Receive Date: 20141001
  Receipt Date: 20141215
  Transmission Date: 20150528
  Serious: Yes (Other)
  Sender: FDA-Public Use
  Company Number: ES-BRISTOL-MYERS SQUIBB COMPANY-21442504

PATIENT
  Age: 47 Year
  Sex: Male

DRUGS (1)
  1. DASATINIB [Suspect]
     Active Substance: DASATINIB
     Indication: CHRONIC MYELOID LEUKAEMIA
     Dosage: DOSE REDUCED TO 60MG AND REINTRODUCED.
     Route: 065
     Dates: start: 201302, end: 201305

REACTIONS (3)
  - Pleural effusion [Recovered/Resolved]
  - Weight decreased [Unknown]
  - Natural killer T cell count increased [Recovered/Resolved]

NARRATIVE: CASE EVENT DATE: 201305
